FAERS Safety Report 6322783-6 (Version None)
Quarter: 2009Q3

REPORT INFORMATION
  Report Type: 
  Country: None (occurrence: None)
  Receive Date: 20090824
  Receipt Date: 20090307
  Transmission Date: 20100115
  Serious: No
  Sender: FDA-Public Use
  Company Number: US-ABBOTT-09P-163-0561446-00

PATIENT
  Sex: Female

DRUGS (6)
  1. NIASPAN [Suspect]
     Indication: DRUG USE FOR UNKNOWN INDICATION
     Route: 048
     Dates: start: 20090207, end: 20090306
  2. METFORMIN HCL [Concomitant]
     Indication: DRUG USE FOR UNKNOWN INDICATION
  3. GLIPIZIDE [Concomitant]
     Indication: DRUG USE FOR UNKNOWN INDICATION
  4. COZAAR [Concomitant]
     Indication: DRUG USE FOR UNKNOWN INDICATION
  5. VYTORIN [Concomitant]
     Indication: DRUG USE FOR UNKNOWN INDICATION
  6. ATENOLOL [Concomitant]
     Indication: DRUG USE FOR UNKNOWN INDICATION

REACTIONS (1)
  - CHEST DISCOMFORT [None]
